FAERS Safety Report 5080772-6 (Version None)
Quarter: 2006Q3

REPORT INFORMATION
  Report Type: 
  Country: None (occurrence: None)
  Receive Date: 20060810
  Receipt Date: 20060801
  Transmission Date: 20061208
  Serious: Yes (Other)
  Sender: FDA-Public Use
  Company Number: 2006084550

PATIENT
  Age: 70 Year
  Sex: Male
  Weight: 92 kg

DRUGS (5)
  1. ACCUPRIL [Suspect]
     Indication: HYPERTENSION
     Dosage: 20 MG (20 MG, 1 IN 1 D), ORAL
     Route: 048
     Dates: start: 20060418, end: 20060725
  2. BISOPROLOL FUMARATE [Concomitant]
  3. INDAPAMIDE [Concomitant]
  4. AMLODIPINE [Concomitant]
  5. ATORVASTATIN CALCIUM [Concomitant]

REACTIONS (1)
  - HAEMOGLOBIN DECREASED [None]
